FAERS Safety Report 14985740 (Version 2)
Quarter: 2018Q2

REPORT INFORMATION
  Report Type: Spontaneous
  Country: FR (occurrence: FR)
  Receive Date: 20180607
  Receipt Date: 20180622
  Transmission Date: 20180711
  Serious: Yes (Other)
  Sender: FDA-Public Use
  Company Number: FR-ACORDA-ACO_150945_2018

PATIENT
  Age: 44 Year
  Sex: Female

DRUGS (3)
  1. QUTENZA [Suspect]
     Active Substance: CAPSAICIN
     Indication: NEURALGIA
     Dosage: 1 DF, UNK
     Route: 003
     Dates: start: 20170530
  2. QUTENZA [Suspect]
     Active Substance: CAPSAICIN
     Dosage: 1 DF, UNK
     Route: 003
     Dates: start: 20180515, end: 20180515
  3. QUTENZA [Suspect]
     Active Substance: CAPSAICIN
     Dosage: 1 DF, UNK
     Route: 003
     Dates: start: 20170817

REACTIONS (7)
  - Feeling hot [Unknown]
  - Product use issue [Unknown]
  - Exposure during pregnancy [Unknown]
  - Pruritus [Unknown]
  - Angioedema [Recovered/Resolved]
  - Maternal exposure during breast feeding [Unknown]
  - Burning sensation [Recovered/Resolved]

NARRATIVE: CASE EVENT DATE: 2017
